FAERS Safety Report 20614863 (Version 1)
Quarter: 2022Q1

REPORT INFORMATION
  Report Type: Spontaneous
  Country: US (occurrence: US)
  Receive Date: 20220321
  Receipt Date: 20220321
  Transmission Date: 20220424
  Serious: No
  Sender: FDA-Public Use
  Company Number: US-NOVARTISTESTPH-NVSC2022US063334

PATIENT
  Sex: Male

DRUGS (1)
  1. EVEROLIMUS [Suspect]
     Active Substance: EVEROLIMUS
     Indication: Neoplasm malignant
     Dosage: 18 MG
     Route: 065

REACTIONS (5)
  - Fatigue [Unknown]
  - Rash [Unknown]
  - Headache [Unknown]
  - Platelet count decreased [Unknown]
  - Hypertension [Unknown]
